FAERS Safety Report 9186954 (Version 1)
Quarter: 2013Q1

REPORT INFORMATION
  Report Type: Spontaneous
  Country: US (occurrence: US)
  Receive Date: 20130325
  Receipt Date: 20130325
  Transmission Date: 20140127
  Serious: Yes (Other)
  Sender: FDA-Public Use
  Company Number: PHEH2013US006540

PATIENT
  Sex: Female

DRUGS (2)
  1. TRILEPTAL [Suspect]
     Dosage: UNK UKN, UNK
  2. ABILIFY [Suspect]

REACTIONS (1)
  - Loss of consciousness [Not Recovered/Not Resolved]
